FAERS Safety Report 6220916-3 (Version None)
Quarter: 2009Q2

REPORT INFORMATION
  Report Type: 
  Country: None (occurrence: None)
  Receive Date: 20090610
  Receipt Date: 20090601
  Transmission Date: 20091009
  Serious: Yes (Hospitalization)
  Sender: FDA-Public Use
  Company Number: US-AMGEN-QUU349352

PATIENT
  Sex: Female

DRUGS (1)
  1. ENBREL [Suspect]
     Indication: PSORIASIS
     Route: 058
     Dates: start: 20010101

REACTIONS (6)
  - EAR DISCOMFORT [None]
  - EAR PAIN [None]
  - ECTOPIC PREGNANCY [None]
  - ENDOMETRIOSIS [None]
  - HYSTERECTOMY [None]
  - OVARIAN CYST [None]
